FAERS Safety Report 4507502-8 (Version None)
Quarter: 2004Q4

REPORT INFORMATION
  Report Type: 
  Country: None (occurrence: None)
  Receive Date: 20041123
  Receipt Date: 20041112
  Transmission Date: 20050328
  Serious: Yes (Hospitalization)
  Sender: FDA-Public Use
  Company Number: US-JNJFOC-20041103578

PATIENT
  Sex: Female
  Weight: 74.84 kg

DRUGS (17)
  1. INFLIXIMAB [Suspect]
     Indication: RHEUMATOID ARTHRITIS
     Route: 042
  2. METHOTREXATE [Concomitant]
  3. IBUPROFEN [Concomitant]
  4. RAMIPRIL [Concomitant]
  5. FOLIC ACID [Concomitant]
  6. TOBRAMYCIN [Concomitant]
     Route: 055
  7. VITAMIN E [Concomitant]
  8. MULTI-VITAMIN [Concomitant]
  9. MULTI-VITAMIN [Concomitant]
  10. MULTI-VITAMIN [Concomitant]
  11. MULTI-VITAMIN [Concomitant]
  12. MULTI-VITAMIN [Concomitant]
  13. MULTI-VITAMIN [Concomitant]
  14. MULTI-VITAMIN [Concomitant]
  15. MULTI-VITAMIN [Concomitant]
  16. ASPIRIN [Concomitant]
  17. BOTOX [Concomitant]
     Dosage: EVERY 3-4 MONTHS
     Route: 050

REACTIONS (3)
  - CRYPTOGENIC ORGANIZING PNEUMONIA [None]
  - OBLITERATIVE BRONCHIOLITIS [None]
  - PULMONARY FIBROSIS [None]
